FAERS Safety Report 4596304-2 (Version None)
Quarter: 2005Q1

REPORT INFORMATION
  Report Type: 
  Country: None (occurrence: None)
  Receive Date: 20050228
  Receipt Date: 20050215
  Transmission Date: 20050727
  Serious: Yes (Hospitalization, Disabling)
  Sender: FDA-Public Use
  Company Number: HQWYE064206AUG04

PATIENT
  Age: 34 Year
  Sex: Female

DRUGS (1)
  1. RAPAMUNE [Suspect]
     Indication: PROPHYLAXIS AGAINST TRANSPLANT REJECTION
     Dates: start: 20020802, end: 20040624

REACTIONS (4)
  - GRAFT LOSS [None]
  - HAEMODIALYSIS [None]
  - KLEBSIELLA INFECTION [None]
  - URINARY TRACT INFECTION [None]
